FAERS Safety Report 9080063 (Version 3)
Quarter: 2013Q2

REPORT INFORMATION
  Report Type: Report from Study
  Country: US (occurrence: US)
  Receive Date: 20130130
  Receipt Date: 20130411
  Transmission Date: 20140414
  Serious: Yes (Other)
  Sender: FDA-Public Use
  Company Number: US-ABBOTT-12P-163-0957881-00

PATIENT
  Age: 50 Year
  Sex: Female
  Weight: 60.38 kg

DRUGS (15)
  1. HUMIRA [Suspect]
     Indication: RHEUMATOID ARTHRITIS
     Route: 058
     Dates: start: 2010
  2. HUMIRA [Suspect]
     Indication: SCLERODERMA
  3. METHOTREXATE [Concomitant]
     Indication: RHEUMATOID ARTHRITIS
  4. LYRICA [Concomitant]
     Indication: FIBROMYALGIA
  5. SINGULAIR [Concomitant]
     Indication: ASTHMA
  6. NEXIUM [Concomitant]
     Indication: GASTROOESOPHAGEAL REFLUX DISEASE
  7. NEXIUM [Concomitant]
     Indication: IMPAIRED GASTRIC EMPTYING
  8. TRILIPIX [Concomitant]
     Indication: HYPERLIPIDAEMIA
  9. PROCARDIA [Concomitant]
     Indication: HYPERTENSION
  10. FOLIC ACID [Concomitant]
     Indication: VITAMIN SUPPLEMENTATION
  11. RHINOCORT [Concomitant]
     Indication: SINUSITIS
  12. COMBIVENT [Concomitant]
     Indication: ASTHMA
  13. PREDNISONE [Concomitant]
     Indication: RHEUMATOID ARTHRITIS
  14. MOTILIUM [Concomitant]
     Indication: IMPAIRED GASTRIC EMPTYING
  15. XANAX [Concomitant]
     Indication: TREMOR

REACTIONS (5)
  - Breast haematoma [Recovering/Resolving]
  - Intraductal proliferative breast lesion [Unknown]
  - Increased tendency to bruise [Not Recovered/Not Resolved]
  - Weight decreased [Not Recovered/Not Resolved]
  - Impaired gastric emptying [Not Recovered/Not Resolved]
